FAERS Safety Report 17514499 (Version 1)
Quarter: 2020Q1

REPORT INFORMATION
  Report Type: Spontaneous
  Country: HK (occurrence: HK)
  Receive Date: 20200307
  Receipt Date: 20200307
  Transmission Date: 20200409
  Serious: Yes (Death, Life-Threatening, Hospitalization, Other)
  Sender: FDA-Public Use
  Company Number: HK-MACLEODS PHARMACEUTICALS US LTD-MAC2020025468

PATIENT

DRUGS (7)
  1. HALOPERIDOL 5 MG [Suspect]
     Active Substance: HALOPERIDOL
     Indication: SEDATIVE THERAPY
     Dosage: 5 MILLIGRAM, INJECTION
     Route: 065
     Dates: start: 201010
  2. QUETIAPINE. [Suspect]
     Active Substance: QUETIAPINE
     Indication: ABNORMAL BEHAVIOUR
     Dosage: UNK
     Route: 065
     Dates: start: 201010
  3. CLONAZEPAM. [Suspect]
     Active Substance: CLONAZEPAM
     Indication: ABNORMAL BEHAVIOUR
     Dosage: UNK
     Route: 065
     Dates: start: 201010
  4. LITHIUM. [Suspect]
     Active Substance: LITHIUM
     Indication: ABNORMAL BEHAVIOUR
     Dosage: UNK
     Route: 065
     Dates: start: 201010
  5. NITROFURANTOIN. [Concomitant]
     Active Substance: NITROFURANTOIN
     Indication: URINARY TRACT INFECTION
     Dosage: UNK
     Route: 065
     Dates: start: 201010
  6. RISPERIDONE. [Suspect]
     Active Substance: RISPERIDONE
     Indication: ABNORMAL BEHAVIOUR
     Dosage: UNK
     Route: 065
     Dates: start: 201010
  7. HALOPERIDOL DECANOATE. [Suspect]
     Active Substance: HALOPERIDOL DECANOATE
     Indication: ABNORMAL BEHAVIOUR
     Dosage: UNK
     Route: 065
     Dates: start: 201010

REACTIONS (2)
  - Deep vein thrombosis [Fatal]
  - Pulmonary embolism [Fatal]

NARRATIVE: CASE EVENT DATE: 2010
